FAERS Safety Report 10250555 (Version 1)
Quarter: 2014Q2

REPORT INFORMATION
  Report Type: Spontaneous
  Country: US (occurrence: None)
  Receive Date: 20140618
  Receipt Date: 20140618
  Transmission Date: 20141212
  Serious: Yes (Hospitalization, Other)
  Sender: FDA-Public Use
  Company Number: None

PATIENT
  Age: 80 Year
  Sex: Female
  Weight: 87.09 kg

DRUGS (14)
  1. RANEXA [Suspect]
     Indication: ANGINA PECTORIS
     Dosage: 1 TAB 2 TIMES DAILY 2 X BY MOUTH
     Route: 048
     Dates: start: 20140127
  2. LOSARTIN [Concomitant]
  3. ASPRIN [Concomitant]
  4. ATORVASTATIN [Concomitant]
  5. BYSTOLIC [Concomitant]
  6. CLOPIDOGREL [Concomitant]
  7. PANTOPRAZOLE [Concomitant]
  8. BIOTIN [Concomitant]
  9. CRANBERRY [Concomitant]
  10. D3 [Concomitant]
  11. FISH OIL [Concomitant]
  12. GLUCOSAMINE [Concomitant]
  13. MULTI-VIT [Concomitant]
  14. CO-Q-10 [Concomitant]

REACTIONS (5)
  - Syncope [None]
  - Fall [None]
  - Rib fracture [None]
  - Laceration [None]
  - Clavicle fracture [None]
